FAERS Safety Report 9890865 (Version 1)
Quarter: 2014Q1

REPORT INFORMATION
  Report Type: Spontaneous
  Country: NL (occurrence: NL)
  Receive Date: 20140212
  Receipt Date: 20140212
  Transmission Date: 20141002
  Serious: Yes (Hospitalization)
  Sender: FDA-Public Use
  Company Number: NL-NOVOPROD-399544

PATIENT
  Age: 64 Year
  Sex: Female

DRUGS (6)
  1. VICTOZA [Suspect]
     Indication: TYPE 2 DIABETES MELLITUS
     Dosage: UNK
     Route: 058
  2. VICTOZA [Suspect]
     Dosage: 1.8 MG, QD
     Route: 058
     Dates: start: 201207
  3. VICTOZA [Suspect]
     Dosage: 1.8 MG, BID
     Route: 058
  4. METFORMIN [Concomitant]
     Dosage: UNK
     Route: 065
     Dates: start: 2011
  5. AMARYL [Concomitant]
     Dosage: UNK
     Route: 065
     Dates: start: 2011
  6. AMARYL [Concomitant]
     Dosage: ONCE DAILY
     Dates: start: 201207

REACTIONS (2)
  - Lactic acidosis [Recovered/Resolved]
  - Weight decreased [Unknown]
